FAERS Safety Report 16955476 (Version 1)
Quarter: 2019Q4

REPORT INFORMATION
  Report Type: Spontaneous
  Country: IL (occurrence: IL)
  Receive Date: 20191024
  Receipt Date: 20191024
  Transmission Date: 20200122
  Serious: Yes (Other)
  Sender: FDA-Public Use
  Company Number: IL-BIO PRODUCTS LABORATORY LTD-2075993

PATIENT

DRUGS (1)
  1. HUMAN NORMAL IMMUNGLOBULIN [Suspect]
     Active Substance: HUMAN IMMUNOGLOBULIN G
     Indication: JAUNDICE
     Route: 042

REACTIONS (3)
  - Apnoea [Unknown]
  - Off label use [Unknown]
  - Cyanosis [Unknown]
